FAERS Safety Report 6969473-4 (Version None)
Quarter: 2010Q3

REPORT INFORMATION
  Report Type: 
  Country: None (occurrence: None)
  Receive Date: 20100907
  Receipt Date: 20100902
  Transmission Date: 20110219
  Serious: Yes (Other)
  Sender: FDA-Public Use
  Company Number: US-AMGEN-KDC432172

PATIENT
  Age: 58 Year
  Sex: Male
  Weight: 77.7 kg

DRUGS (17)
  1. PANITUMUMAB [Suspect]
     Indication: OESOPHAGEAL CARCINOMA
     Route: 042
     Dates: start: 20100416, end: 20100615
  2. TAXOTERE [Suspect]
     Route: 042
     Dates: start: 20100416, end: 20100615
  3. CISPLATIN [Suspect]
     Route: 042
     Dates: start: 20100416, end: 20100615
  4. RADIATION THERAPY [Suspect]
     Dates: start: 20100624
  5. METOPROLOL TARTRATE [Concomitant]
     Route: 048
  6. POTASSIUM PHOSPHATES [Concomitant]
     Route: 048
     Dates: start: 20100601
  7. AZITHROMYCIN [Concomitant]
     Route: 048
     Dates: start: 20100608
  8. DECADRON [Concomitant]
     Dates: start: 20100614, end: 20100615
  9. HYCODAN [Concomitant]
     Dates: start: 20100609
  10. BENADRYL [Concomitant]
     Route: 042
     Dates: start: 20100615
  11. ALOXI [Concomitant]
     Route: 042
     Dates: start: 20100615
  12. EMEND [Concomitant]
     Route: 042
     Dates: start: 20100615
  13. MAGNESIUM SULFATE [Concomitant]
     Route: 042
     Dates: start: 20100615
  14. MANNITOL [Concomitant]
     Route: 042
     Dates: start: 20100615
  15. POTASSIUM CHLORIDE [Concomitant]
     Route: 042
  16. MAGNESIUM OXIDE [Concomitant]
     Route: 048
     Dates: start: 20100615
  17. ACETAMINOPHEN [Concomitant]

REACTIONS (1)
  - LYMPHOPENIA [None]
